FAERS Safety Report 5382480-0 (Version None)
Quarter: 2007Q3

REPORT INFORMATION
  Report Type: 
  Country: None (occurrence: None)
  Receive Date: 20070710
  Receipt Date: 20070625
  Transmission Date: 20080115
  Serious: Yes (Other)
  Sender: FDA-Public Use
  Company Number: PHBS2007JP10855

PATIENT

DRUGS (1)
  1. SANDOSTATIN [Suspect]
     Route: 065

REACTIONS (2)
  - URETERIC STENOSIS [None]
  - URINARY TRACT INFECTION [None]
